FAERS Safety Report 14234059 (Version 1)
Quarter: 2017Q4

REPORT INFORMATION
  Report Type: Spontaneous
  Country: US (occurrence: US)
  Receive Date: 20171129
  Receipt Date: 20171129
  Transmission Date: 20180321
  Serious: No
  Sender: FDA-Public Use
  Company Number: US-JNJFOC-20171115841

PATIENT
  Age: 86 Year
  Sex: Female
  Weight: 63.5 kg

DRUGS (4)
  1. TOPROL XL [Concomitant]
     Active Substance: METOPROLOL SUCCINATE
     Indication: CARDIAC DISORDER
     Route: 065
  2. MAPROTILINE [Concomitant]
     Active Substance: MAPROTILINE
     Indication: ANTIDEPRESSANT THERAPY
     Route: 065
  3. TYLENOL EXTRA STRENGTH [Suspect]
     Active Substance: ACETAMINOPHEN
     Indication: ARTHRALGIA
     Dosage: 2 TABLETS IN THE MORNING AND 2 TABLETS IN THE EVENING
     Route: 048
     Dates: start: 201709
  4. MAPROTILINE [Concomitant]
     Active Substance: MAPROTILINE
     Indication: ANXIETY
     Route: 065

REACTIONS (1)
  - Fatigue [Recovered/Resolved]
